FAERS Safety Report 7534000-X (Version None)
Quarter: 2011Q2

REPORT INFORMATION
  Report Type: 
  Country: None (occurrence: None)
  Receive Date: 20110608
  Receipt Date: 20060718
  Transmission Date: 20111010
  Serious: Yes (Hospitalization)
  Sender: FDA-Public Use
  Company Number: PHHO2006PH08536

PATIENT
  Sex: Female

DRUGS (4)
  1. VITAMIN B COMPLEX CAP [Concomitant]
  2. ASCORBIC ACID [Concomitant]
  3. DIOVAN HCT [Suspect]
     Indication: HYPERTENSION
     Dosage: 80MG/12.5MG
     Route: 048
     Dates: start: 20050212
  4. BETHANECHOL CHLORIDE [Concomitant]

REACTIONS (1)
  - SPINAL CORD NEOPLASM [None]
